FAERS Safety Report 4912594-8 (Version None)
Quarter: 2006Q1

REPORT INFORMATION
  Report Type: 
  Country: None (occurrence: None)
  Receive Date: 20060215
  Receipt Date: 20060202
  Transmission Date: 20060701
  Serious: Yes (Hospitalization)
  Sender: FDA-Public Use
  Company Number: CH-GLAXOSMITHKLINE-B0409024A

PATIENT
  Age: 75 Year
  Sex: Female

DRUGS (3)
  1. LAMICTAL [Suspect]
     Indication: EPILEPSY
     Dosage: 200MG PER DAY
     Route: 048
  2. TOPAMAX [Concomitant]
     Indication: EPILEPSY
     Dosage: 125MG PER DAY
     Route: 048
  3. LEXOTANIL [Concomitant]
     Route: 065

REACTIONS (5)
  - BLOOD ALKALINE PHOSPHATASE INCREASED [None]
  - COAGULOPATHY [None]
  - CONFUSIONAL STATE [None]
  - INCORRECT DOSE ADMINISTERED [None]
  - JAUNDICE CHOLESTATIC [None]
